FAERS Safety Report 9586321 (Version 3)
Quarter: 2013Q4

REPORT INFORMATION
  Report Type: Spontaneous
  Country: BR (occurrence: BR)
  Receive Date: 20131003
  Receipt Date: 20131107
  Transmission Date: 20140711
  Serious: Yes (Other)
  Sender: FDA-Public Use
  Company Number: PHHY2013BR110263

PATIENT
  Age: 69 Year
  Sex: Female
  Weight: 76 kg

DRUGS (8)
  1. DIOVAN AMLO FIX [Suspect]
     Indication: BLOOD PRESSURE ABNORMAL
     Dosage: 1 DF (320/5MG) DAILY
     Route: 048
  2. PURAN T4 [Concomitant]
     Indication: THYROID DISORDER
     Dosage: 1 DF, A DAY
     Route: 048
  3. OMEPRAZOLE [Concomitant]
     Indication: GASTRIC DISORDER
     Dosage: 2 DF (20MG), A DAY
     Route: 048
  4. GLIFAGE [Concomitant]
     Indication: DIABETES MELLITUS
     Dosage: 2 DF (500MG), A DAY
     Route: 048
  5. GLIBENCLAMIDE [Concomitant]
     Indication: DIABETES MELLITUS
     Dosage: 1 DF (5MG), A DAY
     Route: 048
  6. SIMVASTATIN [Concomitant]
     Indication: BLOOD CHOLESTEROL ABNORMAL
     Dosage: 1 DF (20MG), A DAY
     Route: 048
  7. TIBOLONE [Concomitant]
     Indication: HOT FLUSH
     Dosage: 1 DF (2.5MG), A DAY
     Route: 048
  8. ZOLPIDEM [Concomitant]
     Indication: SLEEP DISORDER
     Dosage: 0.5 DF (10MG), A DAY
     Route: 048

REACTIONS (3)
  - Chronic obstructive pulmonary disease [Not Recovered/Not Resolved]
  - Fatigue [Unknown]
  - Glucose tolerance impaired [Unknown]
